FAERS Safety Report 4921957-6 (Version None)
Quarter: 2006Q1

REPORT INFORMATION
  Report Type: 
  Country: None (occurrence: None)
  Receive Date: 20060224
  Receipt Date: 20060110
  Transmission Date: 20060701
  Serious: No
  Sender: FDA-Public Use
  Company Number: US-BRISTOL-MYERS SQUIBB COMPANY-13243860

PATIENT
  Age: 34 Year
  Sex: Female
  Weight: 86 kg

DRUGS (2)
  1. VAGISTAT-1 [Suspect]
     Indication: GENITAL PRURITUS FEMALE
     Route: 067
     Dates: start: 20060106, end: 20060106
  2. VAGISTAT-1 [Suspect]
     Indication: VAGINAL BURNING SENSATION
     Route: 067
     Dates: start: 20060106, end: 20060106

REACTIONS (3)
  - ABDOMINAL PAIN [None]
  - DYSURIA [None]
  - NAUSEA [None]
